FAERS Safety Report 5065693-7 (Version None)
Quarter: 2006Q3

REPORT INFORMATION
  Report Type: 
  Country: None (occurrence: None)
  Receive Date: 20060725
  Receipt Date: 20060714
  Transmission Date: 20061208
  Serious: Yes (Hospitalization)
  Sender: FDA-Public Use
  Company Number: L06-KOR-02677-01

PATIENT
  Age: 39 Year
  Sex: Female

DRUGS (3)
  1. CARBAMAZEPINE [Suspect]
     Indication: PETIT MAL EPILEPSY
     Dates: start: 20030901
  2. VALPROATE SODIUM [Suspect]
     Indication: PETIT MAL EPILEPSY
     Dosage: 600 MG
     Dates: start: 19980501, end: 19990401
  3. VALPROATE SODIUM [Suspect]
     Indication: PETIT MAL EPILEPSY

REACTIONS (9)
  - ALANINE AMINOTRANSFERASE INCREASED [None]
  - ASPARTATE AMINOTRANSFERASE INCREASED [None]
  - BLOOD LACTATE DEHYDROGENASE INCREASED [None]
  - CONDITION AGGRAVATED [None]
  - CROSS SENSITIVITY REACTION [None]
  - DRUG RASH WITH EOSINOPHILIA AND SYSTEMIC SYMPTOMS [None]
  - EPILEPSY [None]
  - LYMPHADENOPATHY [None]
  - PYREXIA [None]
